FAERS Safety Report 20954965 (Version 4)
Quarter: 2022Q2

REPORT INFORMATION
  Report Type: Spontaneous
  Country: US (occurrence: US)
  Receive Date: 20220614
  Receipt Date: 20220628
  Transmission Date: 20220720
  Serious: No
  Sender: FDA-Public Use
  Company Number: US-PFIZER INC-202200772855

PATIENT
  Age: 21 Year
  Sex: Female
  Weight: 49.44 kg

DRUGS (1)
  1. DEPO-PROVERA [Suspect]
     Active Substance: MEDROXYPROGESTERONE ACETATE
     Dosage: UNK

REACTIONS (5)
  - Needle issue [Unknown]
  - Device leakage [Unknown]
  - Incorrect dose administered by device [Unknown]
  - Exposure via skin contact [Unknown]
  - Accidental exposure to product [Unknown]
